FAERS Safety Report 17241723 (Version 1)
Quarter: 2020Q1

REPORT INFORMATION
  Report Type: Spontaneous
  Country: AR (occurrence: AR)
  Receive Date: 20200107
  Receipt Date: 20200107
  Transmission Date: 20200409
  Serious: Yes (Other)
  Sender: FDA-Public Use
  Company Number: AR-PFIZER INC-2020002752

PATIENT
  Age: 76 Year
  Sex: Male

DRUGS (1)
  1. SUTENT [Suspect]
     Active Substance: SUNITINIB MALATE
     Indication: METASTATIC RENAL CELL CARCINOMA
     Dosage: 50 MG, CYCLIC (SCHEME 4X2 REST )
     Dates: start: 20191203

REACTIONS (9)
  - Hepatitis [Unknown]
  - Salivary hypersecretion [Unknown]
  - Anorectal disorder [Unknown]
  - Gastrointestinal disorder [Unknown]
  - Lip disorder [Unknown]
  - Skin disorder [Unknown]
  - Nasal disorder [Unknown]
  - Depression [Unknown]
  - Genital disorder [Unknown]

NARRATIVE: CASE EVENT DATE: 20191213
